FAERS Safety Report 20867464 (Version 1)
Quarter: 2022Q2

REPORT INFORMATION
  Report Type: Spontaneous
  Country: US (occurrence: None)
  Receive Date: 20220523
  Receipt Date: 20220523
  Transmission Date: 20220720
  Serious: Yes (Other)
  Sender: FDA-Public Use
  Company Number: None

PATIENT
  Age: 44 Year
  Sex: Male
  Weight: 101.25 kg

DRUGS (2)
  1. PAXLOVID [Suspect]
     Active Substance: NIRMATRELVIR\RITONAVIR
     Indication: COVID-19
     Route: 048
     Dates: start: 20220513, end: 20220519
  2. LORSATAN [Concomitant]

REACTIONS (3)
  - Nasopharyngitis [None]
  - SARS-CoV-2 test positive [None]
  - Rebound effect [None]

NARRATIVE: CASE EVENT DATE: 20220523
